FAERS Safety Report 4607869-6 (Version None)
Quarter: 2005Q1

REPORT INFORMATION
  Report Type: 
  Country: None (occurrence: None)
  Receive Date: 20050311
  Receipt Date: 20050301
  Transmission Date: 20050727
  Serious: Yes (Hospitalization)
  Sender: FDA-Public Use
  Company Number: 2005040211

PATIENT
  Age: 27 Year
  Sex: Male
  Weight: 85 kg

DRUGS (1)
  1. CELEBREX [Suspect]
     Indication: BACK PAIN
     Dosage: 1 DOSE FORM (1 IN 1 D), ORAL
     Route: 048
     Dates: start: 20050115, end: 20050118

REACTIONS (7)
  - DUODENAL ULCER [None]
  - HAEMATEMESIS [None]
  - HYPOTENSION [None]
  - MALAISE [None]
  - MELAENA [None]
  - MICROCYTIC ANAEMIA [None]
  - PLATELET COUNT DECREASED [None]
